FAERS Safety Report 23720605 (Version 1)
Quarter: 2024Q2

REPORT INFORMATION
  Report Type: Report from Study
  Country: US (occurrence: US)
  Receive Date: 20240408
  Receipt Date: 20240408
  Transmission Date: 20240716
  Serious: Yes (Hospitalization, Other)
  Sender: FDA-Public Use
  Company Number: US-ABBVIE-5699267

PATIENT
  Age: 52 Year
  Sex: Male
  Weight: 92.986 kg

DRUGS (3)
  1. RINVOQ [Suspect]
     Active Substance: UPADACITINIB
     Indication: Product used for unknown indication
     Dosage: FORM STRENGTH: 15 MG
     Route: 048
     Dates: start: 20221111
  2. RINVOQ [Suspect]
     Active Substance: UPADACITINIB
     Indication: Product used for unknown indication
     Dosage: FORM STRENGTH: 30 MG
     Route: 048
  3. LISINOPRIL [Concomitant]
     Active Substance: LISINOPRIL
     Indication: Hypertension

REACTIONS (9)
  - Dehydration [Recovered/Resolved]
  - Therapeutic product effect incomplete [Unknown]
  - Folliculitis [Recovered/Resolved]
  - Loss of consciousness [Recovered/Resolved]
  - Eczema [Recovering/Resolving]
  - Hypotension [Recovered/Resolved]
  - Pruritus [Recovering/Resolving]
  - Eye disorder [Not Recovered/Not Resolved]
  - Condition aggravated [Recovered/Resolved]

NARRATIVE: CASE EVENT DATE: 20221111
